FAERS Safety Report 24017489 (Version 6)
Quarter: 2024Q3

REPORT INFORMATION
  Report Type: Spontaneous
  Country: US (occurrence: US)
  Receive Date: 20240627
  Receipt Date: 20240809
  Transmission Date: 20241017
  Serious: No
  Sender: ROCHE
  Company Number: US-ROCHE-10000006363

PATIENT
  Age: 44 Year
  Sex: Female
  Weight: 88.0 kg

DRUGS (2)
  1. XOLAIR [Suspect]
     Active Substance: OMALIZUMAB
     Indication: Sjogren^s syndrome
     Dosage: INJECTS INTO THIGH OR STOMACH
     Route: 058
  2. XOLAIR [Suspect]
     Active Substance: OMALIZUMAB
     Dosage: INJECTS INTO THIGH OR STOMACH
     Route: 058

REACTIONS (7)
  - Blood triglycerides increased [Unknown]
  - Product supply issue [Unknown]
  - Product administration error [Unknown]
  - Off label use [Unknown]
  - Hypersensitivity [Not Recovered/Not Resolved]
  - Sinusitis [Not Recovered/Not Resolved]
  - Drug delivery system malfunction [Unknown]

NARRATIVE: CASE EVENT DATE: 20240501
